FAERS Safety Report 8594169-5 (Version None)
Quarter: 2012Q3

REPORT INFORMATION
  Report Type: 
  Country: None (occurrence: None)
  Receive Date: 20120814
  Receipt Date: 20120810
  Transmission Date: 20120928
  Serious: Yes (Hospitalization, Other)
  Sender: FDA-Public Use
  Company Number: CHPA2012US017833

PATIENT
  Age: 51 Year
  Sex: Male

DRUGS (4)
  1. FLONASE [Concomitant]
  2. VOLTAREN [Suspect]
     Indication: ARTHRITIS
     Dosage: UNK, QID
     Route: 061
     Dates: start: 20120101
  3. METFORMIN HCL [Concomitant]
  4. DRUG THERAPY NOS [Concomitant]

REACTIONS (3)
  - SKIN ULCER [None]
  - DRUG ADMINISTERED AT INAPPROPRIATE SITE [None]
  - HYPERKERATOSIS [None]
